FAERS Safety Report 6169500-0 (Version None)
Quarter: 2009Q2

REPORT INFORMATION
  Report Type: 
  Country: None (occurrence: None)
  Receive Date: 20090428
  Receipt Date: 20090423
  Transmission Date: 20091009
  Serious: No
  Sender: FDA-Public Use
  Company Number: FR-JNJFOC-20090405286

PATIENT
  Age: 84 Year
  Sex: Male

DRUGS (7)
  1. DURAGESIC-100 [Suspect]
     Indication: DRUG USE FOR UNKNOWN INDICATION
     Route: 062
  2. AMIODARONE HYDROCHLORIDE [Concomitant]
  3. SINVASTATINE [Concomitant]
  4. SINTROM [Concomitant]
  5. BISOPROLOL FUMARATE [Concomitant]
  6. EXFORGE [Concomitant]
  7. BROMAZEPAM [Concomitant]
     Route: 048

REACTIONS (3)
  - HALLUCINATION [None]
  - INAPPROPRIATE SCHEDULE OF DRUG ADMINISTRATION [None]
  - NIGHTMARE [None]
